FAERS Safety Report 4708880-7 (Version None)
Quarter: 2005Q3

REPORT INFORMATION
  Report Type: 
  Country: None (occurrence: None)
  Receive Date: 20050705
  Receipt Date: 20050620
  Transmission Date: 20060218
  Serious: Yes (Death, Hospitalization, Other)
  Sender: FDA-Public Use
  Company Number: 2005FR-00049

PATIENT
  Age: 62 Year
  Sex: Male
  Weight: 8 kg

DRUGS (4)
  1. CEFUROXIME [Suspect]
     Indication: INFECTION PROPHYLAXIS
     Dosage: 750MG, INTRAVENOUS
     Route: 042
     Dates: start: 20050322
  2. METRONIDAZOLE [Concomitant]
  3. ASPIRIN [Concomitant]
  4. SIMVASTATIN [Concomitant]

REACTIONS (2)
  - HYPOTENSION [None]
  - URTICARIA [None]
